FAERS Safety Report 4678825-7 (Version None)
Quarter: 2005Q2

REPORT INFORMATION
  Report Type: 
  Country: None (occurrence: None)
  Receive Date: 20050531
  Receipt Date: 20050518
  Transmission Date: 20051028
  Serious: Yes (Hospitalization, Other)
  Sender: FDA-Public Use
  Company Number: 2004-11-1522

PATIENT
  Age: 45 Year
  Sex: Female
  Weight: 75 kg

DRUGS (12)
  1. TEMODAR [Suspect]
     Indication: ASTROCYTOMA
     Dosage: 75 MG/M^2 ORAL
     Route: 048
     Dates: start: 20041008, end: 20041108
  2. FAMVIR [Suspect]
     Indication: HERPES SIMPLEX
     Dosage: 500 MG TID
     Dates: start: 20041028, end: 20041106
  3. RADIATION THERAPY [Concomitant]
  4. ZOFRAN [Concomitant]
  5. LAMICTAL [Concomitant]
  6. DECADRON [Concomitant]
  7. KEPPRA [Concomitant]
  8. METOCLOPRAMIDE [Concomitant]
  9. PROTONIX [Concomitant]
  10. MULTI-VITAMINS [Concomitant]
  11. CALCIUM GLUCONATE [Concomitant]
  12. ORTHO TRI-CYCLEN [Concomitant]

REACTIONS (16)
  - APLASTIC ANAEMIA [None]
  - BONE MARROW DEPRESSION [None]
  - CANDIDIASIS [None]
  - CHEST PAIN [None]
  - CLOSTRIDIUM COLITIS [None]
  - DEAFNESS NEUROSENSORY [None]
  - DISEASE RECURRENCE [None]
  - DRUG INTERACTION [None]
  - DYSPNOEA EXERTIONAL [None]
  - ECCHYMOSIS [None]
  - FEBRILE NEUTROPENIA [None]
  - HERPES SIMPLEX [None]
  - MOUTH ULCERATION [None]
  - ORTHOSTATIC HYPOTENSION [None]
  - PANCYTOPENIA [None]
  - SINUSITIS [None]
